FAERS Safety Report 5888062-6 (Version None)
Quarter: 2008Q3

REPORT INFORMATION
  Report Type: 
  Country: None (occurrence: None)
  Receive Date: 20080917
  Receipt Date: 20080917
  Transmission Date: 20090109
  Serious: No
  Sender: FDA-Public Use
  Company Number: None

PATIENT
  Age: 50 Year
  Sex: Female
  Weight: 77.1115 kg

DRUGS (1)
  1. MUCINEX D [Suspect]
     Indication: COUGH
     Dosage: 1 BID PO
     Route: 048
     Dates: start: 20080901, end: 20080901

REACTIONS (1)
  - GASTROINTESTINAL PAIN [None]
